FAERS Safety Report 20200811 (Version 5)
Quarter: 2022Q3

REPORT INFORMATION
  Report Type: Spontaneous
  Country: CZ (occurrence: CZ)
  Receive Date: 20211217
  Receipt Date: 20220712
  Transmission Date: 20221027
  Serious: Yes (Death, Other)
  Sender: FDA-Public Use
  Company Number: CZ-PFIZER INC-202101728597

PATIENT
  Age: 61 Year
  Sex: Female

DRUGS (4)
  1. MYLOTARG [Suspect]
     Active Substance: GEMTUZUMAB OZOGAMICIN
     Indication: Acute myeloid leukaemia
     Dosage: 1ST DOSE, 1ST INDUCTION, 5MG
     Route: 042
     Dates: start: 20201110, end: 20201110
  2. MYLOTARG [Suspect]
     Active Substance: GEMTUZUMAB OZOGAMICIN
     Dosage: 2ND DOSE, 1ST INDUCTION, 5MG
     Route: 042
     Dates: start: 20201113, end: 20201113
  3. DAUNORUBICIN [Concomitant]
     Active Substance: DAUNORUBICIN
     Dosage: 60 MG/M2
     Dates: start: 20201110, end: 20201116
  4. CYTARABINE [Concomitant]
     Active Substance: CYTARABINE
     Dosage: 1ST INDUCTION 7 (CYTARABIN 200 MG/M2)
     Dates: start: 20201110, end: 20201116

REACTIONS (5)
  - Bronchopulmonary aspergillosis [Fatal]
  - COVID-19 [Fatal]
  - Gastrointestinal inflammation [Recovered/Resolved]
  - Gastrointestinal haemorrhage [Recovered/Resolved]
  - Chills [Recovered/Resolved]

NARRATIVE: CASE EVENT DATE: 20201101
